FAERS Safety Report 9254762 (Version 1)
Quarter: 2013Q2

REPORT INFORMATION
  Report Type: Spontaneous
  Country: US (occurrence: None)
  Receive Date: 20130418
  Receipt Date: 20130418
  Transmission Date: 20140414
  Serious: Yes (Other)
  Sender: FDA-Public Use
  Company Number: JPI-P031131

PATIENT
  Age: 43 Year
  Sex: Female

DRUGS (1)
  1. XYREM (500 MILLIGRAM/MILLILITERS, SOLUTION) (SODIUM OXYBATE) [Suspect]
     Indication: SLEEP DISORDER
     Route: 048
     Dates: start: 20071016

REACTIONS (5)
  - Road traffic accident [None]
  - Dyspepsia [None]
  - Post-traumatic neck syndrome [None]
  - Pain [None]
  - Insomnia [None]
